FAERS Safety Report 8061808-7 (Version None)
Quarter: 2012Q1

REPORT INFORMATION
  Report Type: 
  Country: None (occurrence: None)
  Receive Date: 20120123
  Receipt Date: 20120117
  Transmission Date: 20120608
  Serious: Yes (Hospitalization)
  Sender: FDA-Public Use
  Company Number: US-SHIRE-ALL1-2012-00251

PATIENT
  Age: 16 Year

DRUGS (5)
  1. WELLBUTRIN [Concomitant]
     Indication: PRODUCT USED FOR UNKNOWN INDICATION
     Dosage: UNK, UNKNOWN
     Route: 065
  2. VYVANSE [Suspect]
     Indication: PRODUCT USED FOR UNKNOWN INDICATION
     Dosage: 30 MG, 1X/DAY:QD
     Route: 048
  3. INTUNIV [Suspect]
     Dosage: 1 MG, 1X/DAY:QD
     Route: 048
  4. INTUNIV [Suspect]
     Dosage: 2 MG, 1X/DAY:QD
     Route: 048
  5. INTUNIV [Suspect]
     Indication: PRODUCT USED FOR UNKNOWN INDICATION
     Dosage: 1 MG, 1X/DAY:QD
     Route: 048

REACTIONS (3)
  - BLOOD PRESSURE DECREASED [None]
  - HEART RATE INCREASED [None]
  - MIDDLE INSOMNIA [None]
